FAERS Safety Report 4618858-X (Version None)
Quarter: 2005Q1

REPORT INFORMATION
  Report Type: 
  Country: None (occurrence: None)
  Receive Date: 20050323
  Receipt Date: 20050311
  Transmission Date: 20050727
  Serious: Yes (Other)
  Sender: FDA-Public Use
  Company Number: 2005035454

PATIENT
  Sex: Female
  Weight: 58.9676 kg

DRUGS (4)
  1. CELEBREX [Suspect]
     Indication: SURGERY
     Dosage: 200 MG (200 MG, 1 IN 1 D), ORAL
     Route: 048
     Dates: start: 20030901, end: 20040101
  2. PANTOPRAZOLE (PANTOPRAZOLE) [Concomitant]
  3. IMIPRAMINE [Concomitant]
  4. HYOSCYAMINE (HYOSCYAMINE) [Concomitant]

REACTIONS (2)
  - ABDOMINAL PAIN UPPER [None]
  - GASTRIC DISORDER [None]
